FAERS Safety Report 5921062-6 (Version None)
Quarter: 2008Q4

REPORT INFORMATION
  Report Type: 
  Country: None (occurrence: None)
  Receive Date: 20081016
  Receipt Date: 20081006
  Transmission Date: 20090506
  Serious: Yes (Death)
  Sender: FDA-Public Use
  Company Number: NO-PFIZER INC-2008084421

PATIENT

DRUGS (3)
  1. DOXORUBICIN HYDROCHLORIDE [Suspect]
  2. VINCRISTINE SULFATE [Suspect]
  3. CYCLOPHOSPHAMIDE [Suspect]

REACTIONS (1)
  - MYOCARDIAL INFARCTION [None]
